FAERS Safety Report 9218293 (Version 1)
Quarter: 2013Q2

REPORT INFORMATION
  Report Type: Spontaneous
  Country: CA (occurrence: CA)
  Receive Date: 20130409
  Receipt Date: 20130409
  Transmission Date: 20140414
  Serious: Yes (Hospitalization, Other)
  Sender: FDA-Public Use
  Company Number: CA-009507513-1304CAN003253

PATIENT
  Sex: 0

DRUGS (4)
  1. ZOCOR [Suspect]
     Indication: BLOOD CHOLESTEROL
  2. ROSUVASTATIN CALCIUM [Suspect]
     Indication: BLOOD CHOLESTEROL
  3. ATORVASTATIN [Suspect]
     Indication: BLOOD CHOLESTEROL
  4. [THERAPY UNSPECIFIED] [Suspect]
     Indication: BLOOD CHOLESTEROL

REACTIONS (1)
  - Renal failure acute [Unknown]
